FAERS Safety Report 10243497 (Version 1)
Quarter: 2014Q2

REPORT INFORMATION
  Report Type: Spontaneous
  Country: US (occurrence: None)
  Receive Date: 20140616
  Receipt Date: 20140616
  Transmission Date: 20141212
  Serious: Yes (Hospitalization)
  Sender: FDA-Public Use
  Company Number: None

PATIENT
  Age: 53 Year
  Sex: Female
  Weight: 57.15 kg

DRUGS (1)
  1. CISPLATIN [Suspect]

REACTIONS (4)
  - Blood creatinine increased [None]
  - Hydroureter [None]
  - Glomerular filtration rate increased [None]
  - Hydronephrosis [None]
